FAERS Safety Report 12899284 (Version 1)
Quarter: 2016Q4

REPORT INFORMATION
  Report Type: Spontaneous
  Country: JP (occurrence: JP)
  Receive Date: 20161101
  Receipt Date: 20161101
  Transmission Date: 20170207
  Serious: Yes (Hospitalization)
  Sender: FDA-Public Use
  Company Number: JP-BAYER-2016-203250

PATIENT
  Age: 72 Year
  Sex: Male

DRUGS (2)
  1. WARFARIN POTASSIUM [Interacting]
     Active Substance: WARFARIN POTASSIUM
     Dosage: UNK
     Route: 048
  2. BAYASPIRIN [Suspect]
     Active Substance: ASPIRIN
     Route: 048

REACTIONS (5)
  - Haemobilia [Recovering/Resolving]
  - Pancreatitis acute [Recovering/Resolving]
  - Labelled drug-drug interaction medication error [Recovering/Resolving]
  - Drug administration error [Recovering/Resolving]
  - Cholecystitis acute [None]
